FAERS Safety Report 9066576 (Version 2)
Quarter: 2013Q1

REPORT INFORMATION
  Report Type: Spontaneous
  Country: US (occurrence: US)
  Receive Date: 20130214
  Receipt Date: 20130327
  Transmission Date: 20140127
  Serious: Yes (Other)
  Sender: FDA-Public Use
  Company Number: US-PFIZER INC-2013058065

PATIENT
  Age: 55 Year
  Sex: Male

DRUGS (3)
  1. LYRICA [Suspect]
     Indication: DIABETIC NEUROPATHY
     Dosage: 100 MG, 2X/DAY
     Route: 048
     Dates: start: 20130108, end: 20130206
  2. LYRICA [Suspect]
     Indication: CERVICAL RADICULOPATHY
  3. OXYCONTIN [Concomitant]
     Indication: PAIN
     Dosage: 80 MG, 3X/DAY
     Route: 048

REACTIONS (2)
  - Delusion [Recovered/Resolved]
  - Psychotic disorder [Recovered/Resolved]
